FAERS Safety Report 22318032 (Version 1)
Quarter: 2023Q2

REPORT INFORMATION
  Report Type: Spontaneous
  Country: US (occurrence: US)
  Receive Date: 20230515
  Receipt Date: 20230515
  Transmission Date: 20230722
  Serious: No
  Sender: FDA-Public Use
  Company Number: US-UCBSA-2022047954

PATIENT
  Sex: Female

DRUGS (1)
  1. NEUPRO [Suspect]
     Active Substance: ROTIGOTINE
     Indication: Restless legs syndrome
     Dosage: 8 MILLIGRAM, ONCE DAILY (QD)
     Route: 062
     Dates: end: 20220814

REACTIONS (5)
  - Erythema [Unknown]
  - Irritability [Unknown]
  - Application site pain [Unknown]
  - Blister [Unknown]
  - Overdose [Unknown]

NARRATIVE: CASE EVENT DATE: 20220813
